FAERS Safety Report 6393979-2 (Version None)
Quarter: 2009Q4

REPORT INFORMATION
  Report Type: 
  Country: None (occurrence: None)
  Receive Date: 20091008
  Receipt Date: 20090714
  Transmission Date: 20100525
  Serious: No
  Sender: FDA-Public Use
  Company Number: US-BRISTOL-MYERS SQUIBB COMPANY-14700629

PATIENT
  Age: 78 Year
  Sex: Female
  Weight: 63 kg

DRUGS (2)
  1. MEGACE [Suspect]
     Indication: WEIGHT INCREASED
     Dosage: MEGACE LIQUID. 1 DF = 1 TSP.
     Dates: end: 20080801
  2. TRIAMTERENE AND HYDROCHLOROTHIAZIDE [Concomitant]
     Dosage: 1 DF = 1/2 TAB.

REACTIONS (1)
  - EXTRAPYRAMIDAL DISORDER [None]
